FAERS Safety Report 5835111-7 (Version None)
Quarter: 2008Q3

REPORT INFORMATION
  Report Type: 
  Country: None (occurrence: None)
  Receive Date: 20080805
  Receipt Date: 20080805
  Transmission Date: 20090109
  Serious: Yes (Hospitalization)
  Sender: FDA-Public Use
  Company Number: None

PATIENT
  Age: 57 Year
  Sex: Female
  Weight: 62.3 kg

DRUGS (22)
  1. ETANERCEPT 50MG AMGEN [Suspect]
     Indication: DERMATOMYOSITIS
     Dosage: 50MG 1 TIME PER WEEK SQ
     Route: 058
     Dates: start: 20080509, end: 20080801
  2. PREDNISONE TAB [Concomitant]
  3. ASPIRIN [Concomitant]
  4. PLAQUENIL [Concomitant]
  5. TRAZODONE HCL [Concomitant]
  6. METHOTREXATE [Concomitant]
  7. OXYCONTIN [Concomitant]
  8. VITAMIN E [Concomitant]
  9. VITAMIN B-12 [Concomitant]
  10. ATENOLOL [Concomitant]
  11. CYMBALTA [Concomitant]
  12. ACYCLOVIR [Concomitant]
  13. ALPRAZOLAM [Concomitant]
  14. ASPIRIN [Concomitant]
  15. ATENOLOL [Concomitant]
  16. DULOXETINE [Concomitant]
  17. GABAPENTIN [Concomitant]
  18. HYDROXYCHLOROQUINE SULFATE [Concomitant]
  19. METHOTREXATE [Concomitant]
  20. PREDNISONE TAB [Concomitant]
  21. TOCOPHEROL CONCENTRATE CAP [Concomitant]
  22. TRAZODONE HCL [Concomitant]

REACTIONS (4)
  - HERPES ZOSTER [None]
  - HYPOAESTHESIA [None]
  - MYELITIS [None]
  - POST HERPETIC NEURALGIA [None]
